FAERS Safety Report 7134080-X (Version None)
Quarter: 2010Q4

REPORT INFORMATION
  Report Type: 
  Country: None (occurrence: None)
  Receive Date: 20101203
  Receipt Date: 20101126
  Transmission Date: 20110411
  Serious: Yes (Other)
  Sender: FDA-Public Use
  Company Number: CN-JNJFOC-20101108803

PATIENT

DRUGS (1)
  1. SPORANOX [Suspect]
     Indication: SYSTEMIC MYCOSIS
     Route: 042

REACTIONS (1)
  - VASCULITIS [None]
